FAERS Safety Report 12134809 (Version 2)
Quarter: 2016Q1

REPORT INFORMATION
  Report Type: Report from Study
  Country: US (occurrence: US)
  Receive Date: 20160301
  Receipt Date: 20160311
  Transmission Date: 20160526
  Serious: Yes (Other)
  Sender: FDA-Public Use
  Company Number: US-SA-2016SA040343

PATIENT
  Sex: Female

DRUGS (4)
  1. ACYCLOVIR. [Concomitant]
     Active Substance: ACYCLOVIR
  2. LEMTRADA [Suspect]
     Active Substance: ALEMTUZUMAB
     Route: 042
     Dates: start: 201504
  3. BACLOFEN. [Concomitant]
     Active Substance: BACLOFEN
  4. HEPARIN [Concomitant]
     Active Substance: HEPARIN SODIUM
     Dosage: HEPARIN FLUSHES (FOR A PORT)

REACTIONS (5)
  - Haematuria [Unknown]
  - Flank pain [Unknown]
  - Renal cell carcinoma [Unknown]
  - Urine analysis abnormal [Unknown]
  - Renal cyst [Unknown]
